FAERS Safety Report 18531863 (Version 1)
Quarter: 2020Q4

REPORT INFORMATION
  Report Type: Other
  Country: JP (occurrence: JP)
  Receive Date: 20201123
  Receipt Date: 20201123
  Transmission Date: 20210114
  Serious: Yes (Hospitalization)
  Sender: FDA-Public Use
  Company Number: JP-ROCHE-2714026

PATIENT
  Age: 63 Year
  Sex: Male

DRUGS (12)
  1. FLUOROURACIL. [Suspect]
     Active Substance: FLUOROURACIL
     Indication: COLORECTAL CANCER METASTATIC
     Route: 065
  2. OTERACIL [Concomitant]
     Active Substance: OTERACIL
     Indication: COLORECTAL CANCER METASTATIC
  3. OXALIPLATIN. [Suspect]
     Active Substance: OXALIPLATIN
     Indication: COLORECTAL CANCER METASTATIC
     Route: 065
  4. IRINOTECAN [Concomitant]
     Active Substance: IRINOTECAN
  5. FOLINIC ACID [Suspect]
     Active Substance: LEUCOVORIN
     Indication: COLORECTAL CANCER METASTATIC
     Route: 065
  6. TEGAFUR [Concomitant]
     Active Substance: TEGAFUR
     Indication: COLORECTAL CANCER METASTATIC
  7. TRIFLURIDINE. [Concomitant]
     Active Substance: TRIFLURIDINE
     Indication: COLORECTAL CANCER METASTATIC
  8. TIPIRACIL [Concomitant]
     Active Substance: TIPIRACIL
     Indication: COLORECTAL CANCER METASTATIC
  9. CETUXIMAB. [Concomitant]
     Active Substance: CETUXIMAB
  10. GIMERACIL [Concomitant]
     Active Substance: GIMERACIL
     Indication: COLORECTAL CANCER METASTATIC
  11. REGORAFENIB. [Concomitant]
     Active Substance: REGORAFENIB
     Indication: COLORECTAL CANCER METASTATIC
  12. BEVACIZUMAB. [Suspect]
     Active Substance: BEVACIZUMAB
     Indication: COLORECTAL CANCER METASTATIC
     Route: 065

REACTIONS (1)
  - Portal hypertension [Recovered/Resolved]
